FAERS Safety Report 20020630 (Version 1)
Quarter: 2021Q4

REPORT INFORMATION
  Report Type: Report from Study
  Country: US (occurrence: US)
  Receive Date: 20211101
  Receipt Date: 20211101
  Transmission Date: 20220303
  Serious: No
  Sender: FDA-Public Use
  Company Number: US-INCYTE CORPORATION-2021IN002885

PATIENT

DRUGS (5)
  1. JAKAFI [Suspect]
     Active Substance: RUXOLITINIB
     Indication: Myelofibrosis
     Dosage: 5 MILLIGRAM, 2 TABS QAM , 1 TAB QPM
     Route: 048
  2. JAKAFI [Suspect]
     Active Substance: RUXOLITINIB
     Dosage: 20 MG (2X10MG) QAM, 10MG QPM
     Route: 048
  3. METFORMIN [Concomitant]
     Active Substance: METFORMIN HYDROCHLORIDE
     Indication: Product used for unknown indication
     Route: 065
  4. IRON [Concomitant]
     Active Substance: IRON
     Indication: Product used for unknown indication
     Dosage: EVERY ONCE IN A WHILE
     Route: 065
  5. VITAMINS NOS [Concomitant]
     Active Substance: VITAMINS
     Indication: Product used for unknown indication
     Dosage: ONCE OR TWICE A WEEK
     Route: 065

REACTIONS (3)
  - Night sweats [Unknown]
  - Skin disorder [Unknown]
  - Contusion [Unknown]
